FAERS Safety Report 9055857 (Version 1)
Quarter: 2013Q1

REPORT INFORMATION
  Report Type: Spontaneous
  Country: US (occurrence: US)
  Receive Date: 20130206
  Receipt Date: 20130206
  Transmission Date: 20140127
  Serious: No
  Sender: FDA-Public Use
  Company Number: US-ALLERGAN-1202839US

PATIENT
  Age: 79 Year
  Sex: Male

DRUGS (3)
  1. RESTASIS? [Suspect]
     Indication: DRY EYE
     Dosage: 2 GTT, BID
     Route: 047
  2. SOOTH [Concomitant]
     Indication: DRY EYE
     Dosage: UNK
  3. WALMART EYE LUBRICANT [Concomitant]
     Indication: DRY EYE
     Dosage: UNK

REACTIONS (3)
  - Lacrimal disorder [Not Recovered/Not Resolved]
  - Expired drug administered [Unknown]
  - Lacrimation increased [Not Recovered/Not Resolved]
